FAERS Safety Report 7706611-X (Version None)
Quarter: 2011Q3

REPORT INFORMATION
  Report Type: 
  Country: None (occurrence: None)
  Receive Date: 20110824
  Receipt Date: 20110812
  Transmission Date: 20111222
  Serious: Yes (Other)
  Sender: FDA-Public Use
  Company Number: US-ELI_LILLY_AND_COMPANY-US201108003230

PATIENT
  Sex: Female

DRUGS (13)
  1. HYDROCHLOROTHIAZIDE [Concomitant]
  2. WARFARIN SODIUM [Concomitant]
  3. ASCORBIC ACID [Concomitant]
  4. FORTEO [Suspect]
     Indication: OSTEOPOROSIS
     Dosage: 20 UG, QD
     Route: 065
     Dates: start: 20110801, end: 20110810
  5. CYMBALTA [Suspect]
     Dosage: UNK, UNKNOWN
     Route: 065
  6. DILTIAZEM [Concomitant]
  7. METOPROLOL [Concomitant]
  8. NAMENDA [Concomitant]
  9. FENTANYL [Concomitant]
  10. COQ-10 [Concomitant]
  11. GLIMEPIRIDE [Concomitant]
  12. VITAMINS NOS [Concomitant]
  13. FISH OIL [Concomitant]

REACTIONS (10)
  - SINUS DISORDER [None]
  - BONE DISORDER [None]
  - HEART RATE INCREASED [None]
  - NAUSEA [None]
  - DYSPNOEA [None]
  - OXYGEN SATURATION DECREASED [None]
  - CHEST DISCOMFORT [None]
  - BLOOD GLUCOSE INCREASED [None]
  - HALLUCINATION [None]
  - INTERNATIONAL NORMALISED RATIO DECREASED [None]
